FAERS Safety Report 7054248-0 (Version None)
Quarter: 2010Q4

REPORT INFORMATION
  Report Type: 
  Country: None (occurrence: None)
  Receive Date: 20101020
  Receipt Date: 20101014
  Transmission Date: 20110411
  Serious: Yes (Other)
  Sender: FDA-Public Use
  Company Number: US-ABBOTT-10P-163-0673354-00

PATIENT
  Sex: Male
  Weight: 104.42 kg

DRUGS (4)
  1. HUMIRA [Suspect]
     Indication: CROHN'S DISEASE
     Route: 058
     Dates: start: 20080101, end: 20100601
  2. HUMIRA [Suspect]
     Dates: start: 20100601
  3. OXYCODONE HCL [Concomitant]
     Indication: PAIN
  4. OMEPRAZOLE [Concomitant]
     Indication: CROHN'S DISEASE

REACTIONS (7)
  - COLONIC FISTULA [None]
  - CROHN'S DISEASE [None]
  - INTESTINAL CYST [None]
  - INTESTINAL FISTULA INFECTION [None]
  - LARGE INTESTINAL HAEMORRHAGE [None]
  - THROAT IRRITATION [None]
  - THROAT TIGHTNESS [None]
